FAERS Safety Report 6760321-4 (Version None)
Quarter: 2010Q2

REPORT INFORMATION
  Report Type: 
  Country: None (occurrence: None)
  Receive Date: 20100528
  Receipt Date: 20090112
  Transmission Date: 20101027
  Serious: No
  Sender: FDA-Public Use
  Company Number: 2009-01007

PATIENT
  Age: 28 Year
  Sex: Male
  Weight: 70.3075 kg

DRUGS (2)
  1. ZICAM COLD REMEDY NASAL GEL [Suspect]
     Dosage: 1 DAY X 5 DOSES
     Dates: start: 20090109, end: 20090110
  2. VICKS DAYQUIL SINUS PRESSURE + PAIN RELIEF W/ IBUPROFEN [Concomitant]

REACTIONS (3)
  - AGEUSIA [None]
  - ANOSMIA [None]
  - BURNING SENSATION [None]
